FAERS Safety Report 5413917-6 (Version None)
Quarter: 2007Q3

REPORT INFORMATION
  Report Type: 
  Country: None (occurrence: None)
  Receive Date: 20070810
  Receipt Date: 20070713
  Transmission Date: 20080115
  Serious: Yes (Death, Hospitalization)
  Sender: FDA-Public Use
  Company Number: 159709USA

PATIENT
  Age: 72 Year
  Sex: Female

DRUGS (4)
  1. PIMOZIDE TABLETS (PIMOZIDE) [Suspect]
     Indication: DYSKINESIA
     Dosage: 2 MG (1 MG, 2 IN 1 D) ORAL
     Route: 048
     Dates: start: 20070504, end: 20070617
  2. PROPRANOLOL [Suspect]
     Indication: FACIAL PAIN
     Dosage: 40 MG (40 MG, 1 IN 1 D)
     Dates: start: 20061130, end: 20070617
  3. PRAZEPAM [Concomitant]
  4. ZOLPIDEM TARTRATE [Concomitant]

REACTIONS (5)
  - BLOOD PHOSPHORUS INCREASED [None]
  - CARDIAC ARREST [None]
  - ELECTROCARDIOGRAM QT PROLONGED [None]
  - INTESTINAL ISCHAEMIA [None]
  - SHOCK [None]
